FAERS Safety Report 10008469 (Version 1)
Quarter: 2014Q1

REPORT INFORMATION
  Report Type: Spontaneous
  Country: IT (occurrence: IT)
  Receive Date: 20140313
  Receipt Date: 20140313
  Transmission Date: 20141002
  Serious: Yes (Life-Threatening)
  Sender: FDA-Public Use
  Company Number: IT-TEVA-466782ISR

PATIENT
  Age: 16 Year
  Sex: Female

DRUGS (6)
  1. BLEOMICINA TEVA [Suspect]
     Indication: HODGKIN^S DISEASE
     Dosage: 16 MILLIGRAM DAILY;
     Route: 042
     Dates: start: 20131017, end: 20131122
  2. ADRIBLASTINA [Suspect]
     Indication: HODGKIN^S DISEASE
     Dosage: 39 MILLIGRAM DAILY;
     Route: 042
     Dates: start: 20131017, end: 20131122
  3. VELBE [Suspect]
     Indication: HODGKIN^S DISEASE
     Dosage: 95 MILLIGRAM DAILY;
     Route: 042
     Dates: start: 20131017, end: 20131122
  4. DETICENE [Suspect]
     Indication: HODGKIN^S DISEASE
     Dosage: 596 MILLIGRAM DAILY;
     Route: 042
     Dates: start: 20131017, end: 20131122
  5. ZOFRAN [Concomitant]
     Indication: PREMEDICATION
     Dosage: 8 MILLIGRAM DAILY;
     Route: 042
     Dates: start: 20131017, end: 20131122
  6. DESAMETASONE FOSFATO HOSPIRA [Concomitant]
     Indication: PREMEDICATION
     Dosage: 8 MILLIGRAM DAILY;
     Route: 042
     Dates: start: 20131017, end: 20131122

REACTIONS (1)
  - Neutropenia [Recovered/Resolved]
